FAERS Safety Report 4899292-4 (Version None)
Quarter: 2006Q1

REPORT INFORMATION
  Report Type: 
  Country: None (occurrence: None)
  Receive Date: 20060131
  Receipt Date: 20060126
  Transmission Date: 20060701
  Serious: Yes (Death)
  Sender: FDA-Public Use
  Company Number: TCI2006A00127

PATIENT
  Age: 42 Year
  Sex: Female

DRUGS (2)
  1. LEUPROLIDE ACETATE [Suspect]
     Indication: UTERINE LEIOMYOMA
     Dosage: 3.75 MG (3.75 MG, 1 IN 28 D) SUBCUTANEOUS
     Route: 058
     Dates: start: 20051128, end: 20051226
  2. FERROMIA (FERROUS CITRATE) [Concomitant]

REACTIONS (2)
  - MYOCARDIAL INFARCTION [None]
  - UNRESPONSIVE TO VERBAL STIMULI [None]
